FAERS Safety Report 17238969 (Version 1)
Quarter: 2020Q1

REPORT INFORMATION
  Report Type: Spontaneous
  Country: US (occurrence: US)
  Receive Date: 20200106
  Receipt Date: 20200106
  Transmission Date: 20200409
  Serious: No
  Sender: FDA-Public Use
  Company Number: US-SA-2019SA335370

PATIENT
  Age: 70 Year
  Sex: Female

DRUGS (2)
  1. ASPERCREME [LIDOCAINE] [Concomitant]
  2. ACT DRY MOUTH LOZENGES [Suspect]
     Active Substance: XYLITOL

REACTIONS (3)
  - Drug hypersensitivity [Unknown]
  - Swelling face [Unknown]
  - Urticaria [Unknown]
